FAERS Safety Report 9154156 (Version 1)
Quarter: 2013Q1

REPORT INFORMATION
  Report Type: Spontaneous
  Country: US (occurrence: US)
  Receive Date: 20130311
  Receipt Date: 20130311
  Transmission Date: 20140127
  Serious: Yes (Other)
  Sender: FDA-Public Use
  Company Number: US-JNJFOC-20130217444

PATIENT
  Sex: Female

DRUGS (13)
  1. EXTRA STRENGTH TYLENOL [Suspect]
     Indication: BACK PAIN
     Dosage: 2 CAPLETS, EVERY 4 HOURS, EVERY DAY
     Route: 048
     Dates: start: 1993, end: 2003
  2. INSULIN (HUMALOG) [Concomitant]
     Indication: DIABETES MELLITUS
     Dosage: 4-6 UNITS/EVERY MEAL
     Dates: start: 2003
  3. INSULIN (LANTUS) [Concomitant]
     Indication: DIABETES MELLITUS
     Dosage: 30 UNITS/DAILY
     Dates: start: 2003
  4. PROPRANOLOL [Concomitant]
     Indication: TREMOR
     Dates: start: 2005
  5. LOSARTAN [Concomitant]
     Indication: HYPERTENSION
     Dates: start: 2003
  6. SEROQUEL [Concomitant]
     Indication: BIPOLAR DISORDER
     Dates: start: 2003
  7. VENLAFAXINE [Concomitant]
     Indication: BIPOLAR DISORDER
     Dates: start: 2003
  8. L-THYROXINE [Concomitant]
     Indication: THYROID DISORDER
     Dosage: 1 TABLET/DAILY
     Dates: start: 2003
  9. ONDANSETRON [Concomitant]
     Indication: NAUSEA
     Dates: start: 2003
  10. BABY ASPIRIN [Concomitant]
     Indication: PROPHYLAXIS
     Dates: start: 2007
  11. RANITIDINE [Concomitant]
     Indication: GASTRIC DISORDER
     Dates: start: 2007
  12. PRIMIDONE [Concomitant]
     Indication: TREMOR
     Dates: start: 2008
  13. LITHIUM CARBONATE [Concomitant]
     Indication: BIPOLAR DISORDER
     Dates: start: 1983

REACTIONS (3)
  - Hepatic cirrhosis [Not Recovered/Not Resolved]
  - Hepatic function abnormal [Not Recovered/Not Resolved]
  - Overdose [Unknown]
